FAERS Safety Report 4294451-6 (Version None)
Quarter: 2004Q1

REPORT INFORMATION
  Report Type: 
  Country: None (occurrence: None)
  Receive Date: 20040211
  Receipt Date: 20030121
  Transmission Date: 20041129
  Serious: Yes (Death)
  Sender: FDA-Public Use
  Company Number: B0290624A

PATIENT
  Age: 46 Year
  Sex: Female

DRUGS (5)
  1. MELPHALAN INJECTION (MEPHALAN) [Suspect]
     Indication: STEM CELL TRANSPLANT
     Dosage: 200 MG/M2/INTRAVENOUS
     Route: 042
  2. DOXORUBICIN HCL [Concomitant]
  3. DEXAMETHASONE [Concomitant]
  4. CYCLOPHOSPHAMIDE [Concomitant]
  5. GRANULOCYTE COL. STIM. FACT [Concomitant]

REACTIONS (2)
  - FEBRILE NEUTROPENIA [None]
  - SEPTIC SHOCK [None]
